FAERS Safety Report 5279047-1 (Version None)
Quarter: 2007Q1

REPORT INFORMATION
  Report Type: 
  Country: None (occurrence: None)
  Receive Date: 20070328
  Receipt Date: 20070313
  Transmission Date: 20070707
  Serious: Yes (Other)
  Sender: FDA-Public Use
  Company Number: PHEH2007US00821

PATIENT
  Age: 35 Year
  Sex: Female

DRUGS (1)
  1. FAMVIR [Suspect]
     Indication: HERPES SIMPLEX
     Dosage: 125 MG, BID
     Route: 048

REACTIONS (3)
  - CAESAREAN SECTION [None]
  - DRUG EXPOSURE DURING PREGNANCY [None]
  - NORMAL NEWBORN [None]
